FAERS Safety Report 20124501 (Version 1)
Quarter: 2021Q4

REPORT INFORMATION
  Report Type: Spontaneous
  Country: US (occurrence: US)
  Receive Date: 20211129
  Receipt Date: 20211129
  Transmission Date: 20220303
  Serious: No
  Sender: FDA-Public Use
  Company Number: US-TEVA-2021-US-1979335

PATIENT
  Sex: Female

DRUGS (2)
  1. WARFARIN SODIUM [Suspect]
     Active Substance: WARFARIN SODIUM
     Indication: Pulmonary embolism
     Dosage: 2.5 MG TABLET AND HALF 0.5 MG TABLETS FROM 1 MG TABLET BY BREAKING IT INTO HALF
     Route: 065
     Dates: start: 2021
  2. WARFARIN SODIUM [Suspect]
     Active Substance: WARFARIN SODIUM
     Route: 065
     Dates: start: 202110

REACTIONS (1)
  - International normalised ratio decreased [Unknown]

NARRATIVE: CASE EVENT DATE: 20210101
